FAERS Safety Report 6671346-1 (Version None)
Quarter: 2010Q2

REPORT INFORMATION
  Report Type: 
  Country: None (occurrence: None)
  Receive Date: 20100407
  Receipt Date: 20100405
  Transmission Date: 20101027
  Serious: Yes (Death, Hospitalization)
  Sender: FDA-Public Use
  Company Number: A0804417A

PATIENT
  Age: 76 Year
  Sex: Male

DRUGS (1)
  1. AVANDIA [Suspect]
     Indication: DIABETES MELLITUS
     Dosage: 8MG TWICE PER DAY
     Route: 048
     Dates: start: 20040101, end: 20070101

REACTIONS (5)
  - CARDIO-RESPIRATORY ARREST [None]
  - INJURY [None]
  - ISCHAEMIA [None]
  - PROSTATE CANCER METASTATIC [None]
  - TRANSIENT ISCHAEMIC ATTACK [None]
